FAERS Safety Report 21762060 (Version 1)
Quarter: 2022Q4

REPORT INFORMATION
  Report Type: Spontaneous
  Country: US (occurrence: None)
  Receive Date: 20221220
  Receipt Date: 20221220
  Transmission Date: 20230112
  Serious: No
  Sender: FDA-Public Use
  Company Number: None

PATIENT
  Sex: Female

DRUGS (2)
  1. TREPROSTINIL [Suspect]
     Active Substance: TREPROSTINIL
     Dosage: OTHER QUANTITY : 50NG/KG/MIN;?OTHER FREQUENCY : CONTINUOUS ?
     Route: 042
     Dates: start: 20210414
  2. DEVICE [Suspect]
     Active Substance: DEVICE
     Indication: Pulmonary arterial hypertension
     Dates: start: 20210414

REACTIONS (3)
  - Heart rate increased [None]
  - Oxygen saturation decreased [None]
  - Recalled product [None]
